FAERS Safety Report 5980211-4 (Version None)
Quarter: 2008Q4

REPORT INFORMATION
  Report Type: 
  Country: None (occurrence: None)
  Receive Date: 20081126
  Receipt Date: 20080811
  Transmission Date: 20090506
  Serious: Yes (Hospitalization)
  Sender: FDA-Public Use
  Company Number: 2008BH008014

PATIENT
  Age: 82 Year
  Sex: Male
  Weight: 71.2147 kg

DRUGS (10)
  1. DIANEAL [Suspect]
     Indication: PERITONEAL DIALYSIS
     Dosage: IP
     Route: 033
     Dates: start: 20080401
  2. DIANEAL [Suspect]
     Indication: PERITONEAL DIALYSIS
     Dosage: IP
     Route: 033
     Dates: start: 20080401
  3. AVANDIA [Concomitant]
  4. BENICAR [Concomitant]
  5. HECTOROL [Concomitant]
  6. LABETALOL HCL [Concomitant]
  7. LISINOPRIL [Concomitant]
  8. MINOXIDIL [Concomitant]
  9. PHOSLO [Concomitant]
  10. SPIRONOLACTONE [Concomitant]

REACTIONS (1)
  - ABDOMINAL PAIN [None]
